FAERS Safety Report 6099652-2 (Version None)
Quarter: 2009Q1

REPORT INFORMATION
  Report Type: 
  Country: None (occurrence: None)
  Receive Date: 20090226
  Receipt Date: 20090220
  Transmission Date: 20090719
  Serious: Yes (Hospitalization, Other)
  Sender: FDA-Public Use
  Company Number: 2009SP002874

PATIENT
  Age: 55 Year
  Sex: Male

DRUGS (5)
  1. PEG-INTRON [Suspect]
     Indication: HEPATITIS C
     Dosage: 100 MCG; PARN
     Dates: start: 20080903
  2. REBETOL [Suspect]
     Indication: HEPATITIS C
     Dosage: 1000 MG; QD; 600 MG; QD; 800 MG; QD
     Dates: start: 20080930
  3. REBETOL [Suspect]
     Indication: HEPATITIS C
     Dosage: 1000 MG; QD; 600 MG; QD; 800 MG; QD
     Dates: start: 20081021
  4. REBETOL [Suspect]
     Indication: HEPATITIS C
     Dosage: 1000 MG; QD; 600 MG; QD; 800 MG; QD
     Dates: start: 20081111
  5. DIOVAN HCT [Concomitant]

REACTIONS (2)
  - ANAEMIA [None]
  - ANGINA PECTORIS [None]
